FAERS Safety Report 9292613 (Version 1)
Quarter: 2013Q2

REPORT INFORMATION
  Report Type: Report from Study
  Country: AR (occurrence: AR)
  Receive Date: 20130516
  Receipt Date: 20130516
  Transmission Date: 20140414
  Serious: Yes (Other)
  Sender: FDA-Public Use
  Company Number: PHHY2013AR048514

PATIENT
  Sex: Male

DRUGS (1)
  1. LAPENAX [Suspect]
     Dosage: 350 MG, DAILY
     Route: 048
     Dates: start: 20070625

REACTIONS (2)
  - Lung disorder [Unknown]
  - Leukocytosis [Not Recovered/Not Resolved]
